FAERS Safety Report 20946289 (Version 1)
Quarter: 2022Q2

REPORT INFORMATION
  Report Type: Spontaneous
  Country: US (occurrence: None)
  Receive Date: 20220610
  Receipt Date: 20220610
  Transmission Date: 20220721
  Serious: Yes (Hospitalization)
  Sender: FDA-Public Use
  Company Number: None

PATIENT
  Sex: Male
  Weight: 114.7 kg

DRUGS (1)
  1. CISPLATIN [Suspect]
     Active Substance: CISPLATIN

REACTIONS (6)
  - Nausea [None]
  - Vomiting [None]
  - Productive cough [None]
  - Cough [None]
  - Hypophagia [None]
  - COVID-19 [None]

NARRATIVE: CASE EVENT DATE: 20220522
